FAERS Safety Report 7379953-8 (Version None)
Quarter: 2011Q1

REPORT INFORMATION
  Report Type: 
  Country: None (occurrence: None)
  Receive Date: 20110318
  Receipt Date: 20110302
  Transmission Date: 20110831
  Serious: Yes (Hospitalization)
  Sender: FDA-Public Use
  Company Number: 2011S1000263

PATIENT
  Age: 72 Year
  Sex: Male

DRUGS (3)
  1. LIVALO [Suspect]
     Indication: CORONARY ARTERY DISEASE
     Dosage: 2 MG; 1X; PO
     Route: 048
     Dates: start: 20100818
  2. TENORMIN [Concomitant]
  3. ASPIRIN [Concomitant]

REACTIONS (4)
  - ACUTE MYOCARDIAL INFARCTION [None]
  - IN-STENT CORONARY ARTERY RESTENOSIS [None]
  - PERIPHERAL ARTERY DISSECTION [None]
  - BLOOD PRESSURE SYSTOLIC DECREASED [None]
